FAERS Safety Report 9447593 (Version 1)
Quarter: 2013Q3

REPORT INFORMATION
  Report Type: Spontaneous
  Country: DE (occurrence: None)
  Receive Date: 20130805
  Receipt Date: 20130805
  Transmission Date: 20140515
  Serious: Yes (Other)
  Sender: FDA-Public Use
  Company Number: 1307-955

PATIENT
  Sex: Male

DRUGS (1)
  1. EYLEA [Suspect]

REACTIONS (1)
  - Device occlusion [None]
